FAERS Safety Report 6921807-2 (Version None)
Quarter: 2010Q3

REPORT INFORMATION
  Report Type: 
  Country: None (occurrence: None)
  Receive Date: 20100812
  Receipt Date: 20100806
  Transmission Date: 20110219
  Serious: Yes (Other)
  Sender: FDA-Public Use
  Company Number: US-MYLANLABS-2010S1007779

PATIENT
  Age: 32 Year
  Sex: Female

DRUGS (1)
  1. AMNESTEEM [Suspect]
     Route: 048
     Dates: start: 20100301, end: 20100429

REACTIONS (2)
  - ABORTION INDUCED [None]
  - DRUG EXPOSURE DURING PREGNANCY [None]
